FAERS Safety Report 5036800-7 (Version None)
Quarter: 2006Q2

REPORT INFORMATION
  Report Type: 
  Country: None (occurrence: None)
  Receive Date: 20060626
  Receipt Date: 20060602
  Transmission Date: 20061013
  Serious: Yes (Hospitalization)
  Sender: FDA-Public Use
  Company Number: S06-GER-01995-01

PATIENT
  Age: 14 Year
  Sex: Female

DRUGS (1)
  1. CITALOPRAM HYDROBROMIDE [Suspect]
     Dosage: 400 MG ONCE
     Dates: start: 20060515

REACTIONS (9)
  - ASPARTATE AMINOTRANSFERASE INCREASED [None]
  - BLOOD CREATINE PHOSPHOKINASE INCREASED [None]
  - CONVULSION [None]
  - DRUG TOXICITY [None]
  - ENURESIS [None]
  - INTENTIONAL OVERDOSE [None]
  - MYOGLOBIN BLOOD INCREASED [None]
  - SUICIDE ATTEMPT [None]
  - TONGUE BITING [None]
